FAERS Safety Report 21767974 (Version 1)
Quarter: 2022Q4

REPORT INFORMATION
  Report Type: Spontaneous
  Country: US (occurrence: US)
  Receive Date: 20221222
  Receipt Date: 20221222
  Transmission Date: 20230113
  Serious: No
  Sender: FDA-Public Use
  Company Number: US-SEATTLE GENETICS-2022SGN11630

PATIENT
  Sex: Female

DRUGS (1)
  1. TIVDAK [Suspect]
     Active Substance: TISOTUMAB VEDOTIN-TFTV
     Indication: Product used for unknown indication
     Dosage: UNK
     Route: 065
     Dates: start: 20221020, end: 202211

REACTIONS (3)
  - Mobility decreased [Unknown]
  - Product use complaint [Unknown]
  - Hospice care [Unknown]
